FAERS Safety Report 15507738 (Version 2)
Quarter: 2018Q4

REPORT INFORMATION
  Report Type: Spontaneous
  Country: US (occurrence: US)
  Receive Date: 20181016
  Receipt Date: 20181116
  Transmission Date: 20190205
  Serious: No
  Sender: FDA-Public Use
  Company Number: US-SA-2018SA286446

PATIENT
  Age: 61 Year
  Sex: Female

DRUGS (1)
  1. PRALUENT [Suspect]
     Active Substance: ALIROCUMAB
     Indication: HYPERLIPIDAEMIA
     Dosage: 75 MG, QOW
     Route: 058

REACTIONS (8)
  - Throat irritation [Recovering/Resolving]
  - Feeling hot [Unknown]
  - Injection site warmth [Unknown]
  - Injection site urticaria [Recovered/Resolved]
  - Urticaria [Recovered/Resolved]
  - Pain [Not Recovered/Not Resolved]
  - Insomnia [Unknown]
  - Injection site bruising [Recovered/Resolved]

NARRATIVE: CASE EVENT DATE: 20181005
